FAERS Safety Report 19584838 (Version 3)
Quarter: 2021Q4

REPORT INFORMATION
  Report Type: Report from Study
  Country: US (occurrence: US)
  Receive Date: 20210720
  Receipt Date: 20211029
  Transmission Date: 20220303
  Serious: Yes (Other)
  Sender: FDA-Public Use
  Company Number: US-MYLANLABS-2021M1043230

PATIENT
  Age: 18 Year
  Sex: Female
  Weight: 74 kg

DRUGS (1)
  1. AMNESTEEM [Suspect]
     Active Substance: ISOTRETINOIN
     Indication: Product used for unknown indication
     Dosage: 40 MILLIGRAM, BID
     Dates: start: 20210403, end: 20210712

REACTIONS (3)
  - Maternal exposure during pregnancy [Recovered/Resolved]
  - Self-medication [Unknown]
  - Abortion induced [Unknown]

NARRATIVE: CASE EVENT DATE: 20210101
